FAERS Safety Report 9299346 (Version 3)
Quarter: 2013Q4

REPORT INFORMATION
  Report Type: Spontaneous
  Country: US (occurrence: US)
  Receive Date: 20130520
  Receipt Date: 20131121
  Transmission Date: 20140711
  Serious: Yes (Death, Hospitalization, Other)
  Sender: FDA-Public Use
  Company Number: US-B.I. PHARMACEUTICALS,INC./RIDGEFIELD-2013-BI-13966BP

PATIENT
  Age: 93 Year
  Sex: Male
  Weight: 81.65 kg

DRUGS (12)
  1. PRADAXA [Suspect]
     Indication: ANTICOAGULANT THERAPY
     Dosage: 300 MG
     Route: 048
     Dates: start: 20111007, end: 20120125
  2. PRADAXA [Suspect]
     Indication: ATRIAL FIBRILLATION
  3. LASIX [Concomitant]
     Dosage: 40 MG
     Route: 048
  4. SIMVASTATIN [Concomitant]
     Dosage: 20 MG
     Route: 048
  5. LEVOTHYROXINE [Concomitant]
     Dosage: 75 MCG
     Route: 048
  6. FIBER LAXATIVE [Concomitant]
     Dosage: 625 MG
     Route: 048
  7. POTASSIUM CHLORIDE [Concomitant]
     Dosage: 20 MEQ
     Route: 048
  8. MULTIVITAMIN [Concomitant]
  9. MULTIVITAMIN [Concomitant]
  10. ARICEPT [Concomitant]
     Dosage: 10 MG
     Route: 048
  11. VITAMIN D3 [Concomitant]
     Dosage: 2000 U
     Route: 048
  12. VITAMIN B12 [Concomitant]
     Dosage: 1000 MCG
     Route: 048

REACTIONS (5)
  - Rectal haemorrhage [Fatal]
  - Femur fracture [Unknown]
  - Fall [Unknown]
  - Hip fracture [Unknown]
  - Renal failure acute [Unknown]
